FAERS Safety Report 9165530 (Version 2)
Quarter: 2013Q1

REPORT INFORMATION
  Report Type: Spontaneous
  Country: US (occurrence: None)
  Receive Date: 20130228
  Receipt Date: 20130305
  Transmission Date: 20140127
  Serious: Yes (Other)
  Sender: FDA-Public Use
  Company Number: JPI-P-029956

PATIENT
  Age: 36 Year
  Sex: Female
  Weight: 86.18 kg

DRUGS (7)
  1. XYREM (500 MILLIGRAM/MILLILITERS, SOLUTION) (SODIUM OXYBATE) [Suspect]
     Indication: CATAPLEXY
     Route: 048
     Dates: start: 20100205
  2. DESVENLAFAXINE [Concomitant]
  3. LEVOTHYROXINE SODIUM [Concomitant]
  4. INFLIXIMAB [Concomitant]
  5. INFLIXIMAB [Concomitant]
  6. LEVETIRACETAM [Concomitant]
  7. LAMOTRIGINE [Concomitant]

REACTIONS (10)
  - Grand mal convulsion [None]
  - Petit mal epilepsy [None]
  - Drug effect decreased [None]
  - Thirst [None]
  - Anxiety [None]
  - Insomnia [None]
  - Gastric disorder [None]
  - Crying [None]
  - Abnormal dreams [None]
  - Nightmare [None]
